FAERS Safety Report 4436794-9 (Version None)
Quarter: 2004Q3

REPORT INFORMATION
  Report Type: 
  Country: None (occurrence: None)
  Receive Date: 20040827
  Receipt Date: 20040824
  Transmission Date: 20050211
  Serious: Yes (Other)
  Sender: FDA-Public Use
  Company Number: 002501

PATIENT
  Sex: Female

DRUGS (7)
  1. MEDROXYPROGESTERONE ACETATE [Suspect]
  2. MEDROXYPROGESTERONE ACETATE [Suspect]
  3. PREMARIN [Suspect]
  4. OGEN [Suspect]
  5. PROVERA [Suspect]
  6. ESTROGENS ( ) [Suspect]
  7. ESTROPIPATE [Suspect]

REACTIONS (1)
  - BREAST CANCER [None]
